FAERS Safety Report 18568006 (Version 1)
Quarter: 2020Q4

REPORT INFORMATION
  Report Type: Spontaneous
  Country: GB (occurrence: GB)
  Receive Date: 20201202
  Receipt Date: 20201202
  Transmission Date: 20210114
  Serious: Yes (Hospitalization)
  Sender: FDA-Public Use
  Company Number: GB-PFIZER INC-2020468606

PATIENT
  Age: 21 Year
  Sex: Female
  Weight: 90 kg

DRUGS (1)
  1. METHOTREXATE SODIUM. [Suspect]
     Active Substance: METHOTREXATE SODIUM
     Indication: ECTOPIC PREGNANCY
     Dosage: 95 MG
     Route: 030
     Dates: start: 20201028

REACTIONS (4)
  - Liver function test abnormal [Recovering/Resolving]
  - Ischaemic hepatitis [Recovering/Resolving]
  - Abdominal pain [Unknown]
  - Off label use [Unknown]

NARRATIVE: CASE EVENT DATE: 20201031
